FAERS Safety Report 8472226-1 (Version None)
Quarter: 2012Q2

REPORT INFORMATION
  Report Type: 
  Country: None (occurrence: None)
  Receive Date: 20120627
  Receipt Date: 20120615
  Transmission Date: 20120825
  Serious: Yes (Hospitalization)
  Sender: FDA-Public Use
  Company Number: US-ELI_LILLY_AND_COMPANY-US201106003403

PATIENT
  Sex: Female

DRUGS (13)
  1. FISH OIL [Concomitant]
     Dosage: UNK, BID
  2. FORTEO [Suspect]
     Dosage: 20 UG, QD
  3. VITAMIN TAB [Concomitant]
  4. GLUCOSAMINE CHONDROITIN [Concomitant]
  5. FORTEO [Suspect]
     Indication: OSTEOPOROSIS
     Dosage: 20 UG, QD
     Route: 065
     Dates: start: 20110507
  6. AVAPRO [Concomitant]
     Indication: BLOOD PRESSURE
  7. ASPIRIN [Concomitant]
     Dosage: UNK, QD
  8. PRILOSEC [Concomitant]
     Dosage: UNK, QD
  9. VITAMIN D [Concomitant]
     Dosage: 3400 IU, QD
  10. FORTEO [Suspect]
     Dosage: 20 UG, QD
     Route: 065
  11. FORTEO [Suspect]
     Dosage: 20 UG, QD
     Route: 065
     Dates: start: 20110507
  12. SYNTHROID [Concomitant]
  13. CALCIUM + VITAMIN D [Concomitant]
     Dosage: UNK, QD

REACTIONS (20)
  - CHEST DISCOMFORT [None]
  - HEART RATE INCREASED [None]
  - MYALGIA [None]
  - DIZZINESS [None]
  - INJECTION SITE HAEMORRHAGE [None]
  - INJECTION SITE HAEMATOMA [None]
  - DRUG DOSE OMISSION [None]
  - BONE DENSITY DECREASED [None]
  - FOREIGN BODY [None]
  - DISCOMFORT [None]
  - CATARACT OPERATION [None]
  - MASS [None]
  - INJECTION SITE PAIN [None]
  - ABDOMINAL DISCOMFORT [None]
  - SKIN ODOUR ABNORMAL [None]
  - BLOOD PRESSURE INCREASED [None]
  - ANXIETY [None]
  - INJECTION SITE PRURITUS [None]
  - INJECTION SITE DISCOMFORT [None]
  - UMBILICAL MALFORMATION [None]
